FAERS Safety Report 4809719-1 (Version None)
Quarter: 2005Q4

REPORT INFORMATION
  Report Type: 
  Country: None (occurrence: None)
  Receive Date: 20051024
  Receipt Date: 20051012
  Transmission Date: 20060501
  Serious: Yes (Death, Hospitalization, Other)
  Sender: FDA-Public Use
  Company Number: HQWYE422428APR05

PATIENT
  Age: 58 Year
  Sex: Female
  Weight: 69.1 kg

DRUGS (9)
  1. CYCLOSPORINE [Suspect]
     Indication: PROPHYLAXIS AGAINST TRANSPLANT REJECTION
     Dosage: 75 MG 1X PER 12 HR, ORAL
     Route: 048
     Dates: start: 20021216
  2. CELLCEPT [Concomitant]
  3. LIPITOR [Concomitant]
  4. TOPROL-XL [Concomitant]
  5. ENALAPRIL MALEATE [Concomitant]
  6. PREDNISONE [Concomitant]
  7. AMITRIPTYLINE HCL [Concomitant]
  8. OXYCONTIN [Concomitant]
  9. BETIMOL (TIMOLOL) [Concomitant]

REACTIONS (15)
  - BREAST CANCER METASTATIC [None]
  - DYSPHAGIA [None]
  - DYSPNOEA [None]
  - ELECTROCARDIOGRAM CHANGE [None]
  - GROIN PAIN [None]
  - HEPATIC FAILURE [None]
  - HEPATIC LESION [None]
  - HYPERCALCAEMIA [None]
  - LETHARGY [None]
  - LOSS OF CONSCIOUSNESS [None]
  - PATHOLOGICAL FRACTURE [None]
  - PYREXIA [None]
  - RENAL FAILURE [None]
  - RIB FRACTURE [None]
  - SPINAL DISORDER [None]
